FAERS Safety Report 22380669 (Version 2)
Quarter: 2023Q2

REPORT INFORMATION
  Report Type: Spontaneous
  Country: US (occurrence: US)
  Receive Date: 20230529
  Receipt Date: 20230608
  Transmission Date: 20230721
  Serious: No
  Sender: FDA-Public Use
  Company Number: US-JNJFOC-20230531537

PATIENT
  Age: 3 Year
  Sex: Female

DRUGS (1)
  1. PEPCID COMPLETE [Suspect]
     Active Substance: CALCIUM CARBONATE\FAMOTIDINE\MAGNESIUM HYDROXIDE
     Indication: Accidental exposure to product by child
     Dosage: ABOUT 6
     Route: 048
     Dates: start: 20230509

REACTIONS (3)
  - Adverse event [Recovering/Resolving]
  - Accidental exposure to product by child [Unknown]
  - Product container seal issue [Unknown]

NARRATIVE: CASE EVENT DATE: 20230509
